FAERS Safety Report 5209051-0 (Version None)
Quarter: 2007Q1

REPORT INFORMATION
  Report Type: 
  Country: None (occurrence: None)
  Receive Date: 20070116
  Receipt Date: 20070108
  Transmission Date: 20070707
  Serious: Yes (Other)
  Sender: FDA-Public Use
  Company Number: PHEH2006US13829

PATIENT
  Sex: Female

DRUGS (1)
  1. FORADIL [Suspect]

REACTIONS (3)
  - DEVICE MALFUNCTION [None]
  - FEELING ABNORMAL [None]
  - PNEUMONIA [None]
